FAERS Safety Report 6726746-8 (Version None)
Quarter: 2010Q2

REPORT INFORMATION
  Report Type: 
  Country: None (occurrence: None)
  Receive Date: 20100515
  Receipt Date: 20100507
  Transmission Date: 20101027
  Serious: Yes (Life-Threatening, Other)
  Sender: FDA-Public Use
  Company Number: JP-JNJFOC-20100407394

PATIENT
  Sex: Female

DRUGS (8)
  1. CRAVIT [Suspect]
     Indication: CYSTITIS
     Route: 048
  2. AMARYL [Suspect]
     Indication: DIABETES MELLITUS
     Route: 048
  3. MELBIN [Suspect]
     Indication: DIABETES MELLITUS
     Route: 048
  4. ADALAT CC [Concomitant]
     Indication: HYPERTENSION
     Route: 048
  5. DIOVAN [Concomitant]
     Indication: HYPERTENSION
     Route: 048
  6. ALPRAZOLAM [Concomitant]
     Route: 065
  7. LUVOX [Concomitant]
     Route: 065
  8. UNKNOWN MEDICATION [Concomitant]
     Indication: INSOMNIA
     Route: 048

REACTIONS (2)
  - COMA [None]
  - HYPOGLYCAEMIA [None]
